FAERS Safety Report 14271233 (Version 1)
Quarter: 2017Q4

REPORT INFORMATION
  Report Type: Spontaneous
  Country: US (occurrence: US)
  Receive Date: 20171211
  Receipt Date: 20171211
  Transmission Date: 20180321
  Serious: Yes (Hospitalization)
  Sender: FDA-Public Use
  Company Number: PHHY2017US175348

PATIENT
  Age: 39 Year
  Sex: Male

DRUGS (1)
  1. NYSTATIN. [Suspect]
     Active Substance: NYSTATIN
     Indication: FUNGAL INFECTION
     Route: 065

REACTIONS (8)
  - Rash papular [Recovering/Resolving]
  - Scab [Recovering/Resolving]
  - Rash vesicular [Recovering/Resolving]
  - Eczema [Recovering/Resolving]
  - Pyrexia [Recovering/Resolving]
  - Impetigo [Recovering/Resolving]
  - Dermatitis contact [Recovering/Resolving]
  - Rash erythematous [Recovering/Resolving]
